FAERS Safety Report 4712733-8 (Version None)
Quarter: 2005Q3

REPORT INFORMATION
  Report Type: 
  Country: None (occurrence: None)
  Receive Date: 20050701
  Receipt Date: 20050422
  Transmission Date: 20060218
  Serious: No
  Sender: FDA-Public Use
  Company Number: 2005054631

PATIENT
  Age: 32 Year
  Sex: Female

DRUGS (2)
  1. ZOLOFT [Suspect]
     Indication: MAJOR DEPRESSION
     Dosage: (1 IN 1 D), ORAL
     Route: 048
     Dates: start: 20050221
  2. TRAZODONE (TRAZODONE) [Concomitant]

REACTIONS (2)
  - ANXIETY [None]
  - DYSTONIA [None]
